FAERS Safety Report 5826678-3 (Version None)
Quarter: 2008Q3

REPORT INFORMATION
  Report Type: 
  Country: None (occurrence: None)
  Receive Date: 20080725
  Receipt Date: 20080716
  Transmission Date: 20090109
  Serious: Yes (Life-Threatening)
  Sender: FDA-Public Use
  Company Number: 89010

PATIENT
  Age: 44 Year
  Sex: Female
  Weight: 86.1834 kg

DRUGS (2)
  1. SORE THROAT SPRAY [Suspect]
     Indication: OROPHARYNGEAL PAIN
     Dosage: 2 SPRAYS/ ONCE/ ORAL
     Route: 048
     Dates: start: 20080710, end: 20080710
  2. ALLEGRA [Concomitant]

REACTIONS (1)
  - ANAPHYLACTIC REACTION [None]
